FAERS Safety Report 8964798 (Version 1)
Quarter: 2012Q4

REPORT INFORMATION
  Report Type: 
  Country: DE (occurrence: DE)
  Receive Date: 20121214
  Receipt Date: 20121214
  Transmission Date: 20130627
  Serious: Yes (Other)
  Sender: FDA-Public Use
  Company Number: DE-PFIZER INC-2012271601

PATIENT
  Sex: Female

DRUGS (4)
  1. LYRICA [Suspect]
     Indication: CHRONIC PAIN
     Dosage: UNK
  2. POLAMIDON [Concomitant]
     Dosage: UNK
  3. KATADOLON [Concomitant]
     Dosage: UNK
     Dates: start: 20120229, end: 20120412
  4. DIAZEPAM [Concomitant]
     Dosage: UNK

REACTIONS (2)
  - Drug abuse [Unknown]
  - Epilepsy [Unknown]
